FAERS Safety Report 14983598 (Version 1)
Quarter: 2018Q2

REPORT INFORMATION
  Report Type: Other
  Country: US (occurrence: US)
  Receive Date: 20180607
  Receipt Date: 20180607
  Transmission Date: 20180711
  Serious: Yes (Other)
  Sender: FDA-Public Use
  Company Number: US-ACORDA-ACO_150596_2018

PATIENT
  Sex: Female

DRUGS (5)
  1. AMPYRA [Suspect]
     Active Substance: DALFAMPRIDINE
     Indication: PRODUCT USED FOR UNKNOWN INDICATION
     Dosage: 10 MG, BID
     Route: 065
  2. GABAPENTIN. [Concomitant]
     Active Substance: GABAPENTIN
     Indication: PRODUCT USED FOR UNKNOWN INDICATION
     Dosage: 300 MG, TID
     Route: 065
  3. TECFIDERA [Suspect]
     Active Substance: DIMETHYL FUMARATE
     Indication: MULTIPLE SCLEROSIS
     Dosage: 120 MG, BID
     Route: 048
  4. VITAMIN D [Concomitant]
     Active Substance: CHOLECALCIFEROL
     Indication: PRODUCT USED FOR UNKNOWN INDICATION
     Dosage: 8000 IU, QD
     Route: 065
  5. TECFIDERA [Suspect]
     Active Substance: DIMETHYL FUMARATE
     Dosage: 240 MG, BID
     Route: 048

REACTIONS (37)
  - Pyrexia [Unknown]
  - Lhermitte^s sign [Unknown]
  - Hypoaesthesia [Unknown]
  - Constipation [Unknown]
  - Diplopia [Unknown]
  - Fall [Unknown]
  - Anal incontinence [Unknown]
  - Condition aggravated [Unknown]
  - Weight decreased [Unknown]
  - Dysgraphia [Unknown]
  - Pollakiuria [Unknown]
  - Sexual dysfunction [Unknown]
  - Depression [Unknown]
  - Muscular weakness [Unknown]
  - Affect lability [Unknown]
  - Gait disturbance [Unknown]
  - Fatigue [Unknown]
  - Urinary tract infection [Unknown]
  - Dysarthria [Unknown]
  - Dysphagia [Unknown]
  - Vertigo [Unknown]
  - Muscle spasms [Unknown]
  - Paraesthesia [Unknown]
  - Burning sensation [Unknown]
  - Fine motor skill dysfunction [Unknown]
  - Micturition urgency [Unknown]
  - Anxiety [Unknown]
  - Cognitive disorder [Unknown]
  - Asthenia [Unknown]
  - Visual field defect [Unknown]
  - Clumsiness [Unknown]
  - Visual acuity reduced [Unknown]
  - Vision blurred [Unknown]
  - Uhthoff^s phenomenon [Unknown]
  - Urinary incontinence [Unknown]
  - Urinary hesitation [Unknown]
  - Pain [Unknown]
